FAERS Safety Report 25953579 (Version 2)
Quarter: 2025Q4

REPORT INFORMATION
  Report Type: Spontaneous
  Country: GB (occurrence: GB)
  Receive Date: 20251023
  Receipt Date: 20251106
  Transmission Date: 20260117
  Serious: Yes (Other)
  Sender: MYLAN
  Company Number: GB-MYLANLABS-2025M1089337

PATIENT
  Sex: Male

DRUGS (1)
  1. CLOZAPINE [Suspect]
     Active Substance: CLOZAPINE
     Indication: Schizophrenia
     Dosage: UNK

REACTIONS (4)
  - Monocytosis [Unknown]
  - Neutrophilia [Unknown]
  - Leukocytosis [Unknown]
  - Anaemia [Unknown]

NARRATIVE: CASE EVENT DATE: 20251016
